FAERS Safety Report 20009521 (Version 3)
Quarter: 2021Q4

REPORT INFORMATION
  Report Type: Report from Study
  Country: US (occurrence: US)
  Receive Date: 20211029
  Receipt Date: 20211222
  Transmission Date: 20220303
  Serious: Yes (Other)
  Sender: FDA-Public Use
  Company Number: US-NOVARTISTESTPH-NVSC2021US246956

PATIENT
  Sex: Female

DRUGS (1)
  1. ENTRESTO [Suspect]
     Active Substance: SACUBITRIL\VALSARTAN
     Indication: Cardiac failure congestive
     Dosage: 50 MG, BID (24/26MG)
     Route: 048
     Dates: start: 202108

REACTIONS (8)
  - Loss of consciousness [Unknown]
  - Anxiety [Unknown]
  - Back pain [Unknown]
  - High density lipoprotein decreased [Unknown]
  - Low density lipoprotein increased [Unknown]
  - Cough [Unknown]
  - Dizziness [Unknown]
  - Inappropriate schedule of product administration [Unknown]
